FAERS Safety Report 25106117 (Version 1)
Quarter: 2025Q1

REPORT INFORMATION
  Report Type: Spontaneous
  Country: US (occurrence: None)
  Receive Date: 20250321
  Receipt Date: 20250321
  Transmission Date: 20250409
  Serious: Yes (Other)
  Sender: FDA-CTU
  Company Number: None

PATIENT
  Age: 12 Month
  Sex: Male
  Weight: 16.9 kg

DRUGS (1)
  1. ZOLGENSMA [Suspect]
     Active Substance: ONASEMNOGENE ABEPARVOVEC-XIOI
     Indication: Spinal muscular atrophy
     Dosage: OTHER QUANTITY : 1 KIT ;?FREQUENCY : DAILY;?
     Route: 042
     Dates: start: 20200108, end: 20200108

REACTIONS (1)
  - Drug effect less than expected [None]

NARRATIVE: CASE EVENT DATE: 20200824
